FAERS Safety Report 7896126-0 (Version None)
Quarter: 2011Q4

REPORT INFORMATION
  Report Type: 
  Country: None (occurrence: None)
  Receive Date: 20111106
  Receipt Date: 20110906
  Transmission Date: 20120403
  Serious: No
  Sender: FDA-Public Use
  Company Number: US-AMGEN-USASP2011045532

PATIENT
  Age: 60 Year
  Sex: Female

DRUGS (11)
  1. FLUOXETINE HCL [Concomitant]
  2. ENBREL [Suspect]
     Indication: RHEUMATOID ARTHRITIS
     Dosage: 50 MG, QWK
     Dates: start: 20110801
  3. METHOTREXATE [Concomitant]
  4. FOLIC ACID [Concomitant]
  5. ZYRTEC [Concomitant]
  6. SINGULAIR [Concomitant]
  7. MELOXICAM [Concomitant]
  8. ADVAIR DISKUS 100/50 [Concomitant]
  9. GABAPENTIN [Concomitant]
  10. TRAZODONE HYDROCHLORIDE [Concomitant]
  11. HYDROCODONE BITARTRATE [Concomitant]

REACTIONS (1)
  - HERPES ZOSTER [None]
